FAERS Safety Report 16521132 (Version 1)
Quarter: 2019Q3

REPORT INFORMATION
  Report Type: Spontaneous
  Country: GB (occurrence: GB)
  Receive Date: 20190702
  Receipt Date: 20190702
  Transmission Date: 20191004
  Serious: Yes (Congenital Anomaly)
  Sender: FDA-Public Use
  Company Number: GB-MYLANLABS-2019M1061300

PATIENT
  Sex: Female

DRUGS (1)
  1. NAPROXEN. [Suspect]
     Active Substance: NAPROXEN
     Indication: HEADACHE
     Dosage: 1500 MILLIGRAM, QD
     Route: 064
     Dates: start: 20180626

REACTIONS (3)
  - Persistent left superior vena cava [Unknown]
  - Foetal exposure during pregnancy [Unknown]
  - Bone development abnormal [Unknown]

NARRATIVE: CASE EVENT DATE: 2018
